FAERS Safety Report 4330318-2 (Version None)
Quarter: 2004Q1

REPORT INFORMATION
  Report Type: 
  Country: None (occurrence: None)
  Receive Date: 20040329
  Receipt Date: 20040316
  Transmission Date: 20041129
  Serious: Yes (Hospitalization)
  Sender: FDA-Public Use
  Company Number: 2004017627

PATIENT
  Age: 58 Year
  Sex: Male

DRUGS (5)
  1. NITROGLYCERIN [Suspect]
     Indication: ANGINA PECTORIS
     Dosage: 0.25 MG
     Dates: start: 19970315
  2. PLACEBO (PLACEBO) [Suspect]
     Indication: CORONARY ARTERY DISEASE
     Dosage: 0 MG
     Dates: end: 19980602
  3. SIMVASTATIN [Concomitant]
  4. ALBYL-ENTEROSOLUBILE (ACETYLSALICYLIC ACID, MAGNESIUM OXIDE) [Concomitant]
  5. METOPROLOL SUCCINATE [Concomitant]

REACTIONS (3)
  - DRUG INTERACTION [None]
  - FATIGUE [None]
  - LOSS OF CONSCIOUSNESS [None]
